FAERS Safety Report 14219613 (Version 2)
Quarter: 2018Q1

REPORT INFORMATION
  Report Type: Spontaneous
  Country: JP (occurrence: JP)
  Receive Date: 20171123
  Receipt Date: 20180104
  Transmission Date: 20180508
  Serious: Yes (Hospitalization)
  Sender: FDA-Public Use
  Company Number: JP-CONCORDIA PHARMACEUTICALS INC.-E2B_00008497

PATIENT
  Age: 27 Year
  Sex: Female

DRUGS (5)
  1. ZONISAMIDE. [Suspect]
     Active Substance: ZONISAMIDE
     Indication: EPILEPSY
     Dosage: UNKNOWN
     Route: 048
  2. SELENICA-R [Concomitant]
     Active Substance: VALPROATE SODIUM
     Indication: EPILEPSY
     Dosage: 600 MG
     Dates: start: 2007, end: 20081018
  3. LEXOTAN [Concomitant]
     Active Substance: BROMAZEPAM
     Dates: start: 20081117
  4. LEXOTAN [Concomitant]
     Active Substance: BROMAZEPAM
     Indication: EPILEPSY
     Dosage: 2 MG
     Route: 048
     Dates: start: 2007, end: 20081018
  5. SELENICA-R [Concomitant]
     Active Substance: VALPROATE SODIUM
     Dates: start: 20081117

REACTIONS (1)
  - Drug reaction with eosinophilia and systemic symptoms [Unknown]

NARRATIVE: CASE EVENT DATE: 20081113
